FAERS Safety Report 9970365 (Version 1)
Quarter: 2014Q1

REPORT INFORMATION
  Report Type: Report from Study
  Country: US (occurrence: US)
  Receive Date: 20140306
  Receipt Date: 20140306
  Transmission Date: 20141002
  Serious: No
  Sender: FDA-Public Use
  Company Number: US-ABBVIE-13P-163-1149003-00

PATIENT
  Sex: Male
  Weight: 122.58 kg

DRUGS (6)
  1. HUMIRA [Suspect]
     Indication: PSORIASIS
     Route: 058
     Dates: end: 201303
  2. SORIATANE [Concomitant]
     Indication: PSORIASIS
  3. OMEPRAZOLE [Concomitant]
     Indication: GASTROOESOPHAGEAL REFLUX DISEASE
  4. FLONASE [Concomitant]
     Indication: RHINITIS ALLERGIC
  5. NIACIN [Concomitant]
     Indication: HYPERTRIGLYCERIDAEMIA
  6. ZYRTEC [Concomitant]
     Indication: RHINITIS ALLERGIC

REACTIONS (3)
  - Skin fissures [Not Recovered/Not Resolved]
  - Psoriasis [Not Recovered/Not Resolved]
  - Hypertension [Not Recovered/Not Resolved]
